FAERS Safety Report 15795411 (Version 1)
Quarter: 2019Q1

REPORT INFORMATION
  Report Type: Spontaneous
  Country: CN (occurrence: CN)
  Receive Date: 20190107
  Receipt Date: 20190107
  Transmission Date: 20190417
  Serious: Yes (Death)
  Sender: FDA-Public Use
  Company Number: PHHY2018CN194088

PATIENT
  Age: 3 Year
  Sex: Male

DRUGS (18)
  1. METHOTREXATE. [Suspect]
     Active Substance: METHOTREXATE
     Indication: BURKITT^S LYMPHOMA STAGE IV
     Dosage: 15 MG, UNK
     Route: 037
  2. CYCLOPHOSPHAMIDE. [Suspect]
     Active Substance: CYCLOPHOSPHAMIDE
     Dosage: 0.5 G/M2, Q12H
     Route: 042
  3. CYTARABINE. [Suspect]
     Active Substance: CYTARABINE
     Dosage: 50 MG, (12 H CONTINUOUSLY)
     Route: 042
  4. CYTARABINE. [Suspect]
     Active Substance: CYTARABINE
     Dosage: 50 MG, (3 H CONTINUOUSLY)
     Route: 042
  5. CALCIUM FOLINATE [Suspect]
     Active Substance: LEUCOVORIN CALCIUM
     Indication: BURKITT^S LYMPHOMA STAGE IV
     Dosage: 15 MG/M2, Q6H
     Route: 048
  6. CYCLOPHOSPHAMIDE. [Suspect]
     Active Substance: CYCLOPHOSPHAMIDE
     Indication: BURKITT^S LYMPHOMA STAGE IV
     Dosage: 0.3 G/M2, UNK
     Route: 042
  7. CYCLOPHOSPHAMIDE. [Suspect]
     Active Substance: CYCLOPHOSPHAMIDE
     Dosage: 1 G/M2, Q12H
     Route: 042
  8. VINCRISTINE [Suspect]
     Active Substance: VINCRISTINE
     Indication: BURKITT^S LYMPHOMA STAGE IV
     Dosage: 2 MG/M2, UNK
     Route: 042
  9. CYTARABINE. [Suspect]
     Active Substance: CYTARABINE
     Indication: BURKITT^S LYMPHOMA STAGE IV
     Dosage: 30 MG, UNK
     Route: 037
  10. CYCLOPHOSPHAMIDE. [Suspect]
     Active Substance: CYCLOPHOSPHAMIDE
     Dosage: 0.5 G/M2, QD ((IN 30 MIN)
     Route: 042
  11. DAUNORUBICIN [Suspect]
     Active Substance: DAUNORUBICIN
     Indication: BURKITT^S LYMPHOMA STAGE IV
     Dosage: 30 MG/M2, Q6H
     Route: 042
  12. ETOPOSIDE. [Suspect]
     Active Substance: ETOPOSIDE
     Indication: BURKITT^S LYMPHOMA STAGE IV
     Dosage: 100 MG/M2, ((2 H CONTINUOUSLY)
     Route: 042
  13. ADRIAMYCIN [Suspect]
     Active Substance: DOXORUBICIN HYDROCHLORIDE
     Indication: BURKITT^S LYMPHOMA STAGE IV
     Dosage: 60 MG/M2, (IN 2 D, 6 H CONTINUOUSLY EACH TIME)
     Route: 042
  14. RITUXIMAB. [Suspect]
     Active Substance: RITUXIMAB
     Indication: BURKITT^S LYMPHOMA STAGE IV
     Dosage: 375 MG/M2, UNK
     Route: 042
  15. METHOTREXATE. [Suspect]
     Active Substance: METHOTREXATE
     Dosage: 5 G/M2, UNK
     Route: 042
  16. PREDNISONE. [Suspect]
     Active Substance: PREDNISONE
     Indication: BURKITT^S LYMPHOMA STAGE IV
     Dosage: 60 MG/M2, BID
     Route: 048
  17. DEXAMETHASONE. [Suspect]
     Active Substance: DEXAMETHASONE
     Indication: BURKITT^S LYMPHOMA STAGE IV
     Dosage: 4 MG, UNK
     Route: 037
  18. CYTARABINE. [Suspect]
     Active Substance: CYTARABINE
     Dosage: 100 MG/M2, Q12H
     Route: 042

REACTIONS (2)
  - Tumour lysis syndrome [Fatal]
  - Renal failure [Fatal]
